FAERS Safety Report 12317172 (Version 1)
Quarter: 2016Q2

REPORT INFORMATION
  Report Type: Spontaneous
  Country: US (occurrence: None)
  Receive Date: 20160428
  Receipt Date: 20160428
  Transmission Date: 20160815
  Serious: Yes (Other)
  Sender: FDA-Public Use
  Company Number: None

PATIENT
  Age: 30 Year
  Sex: Female
  Weight: 61.24 kg

DRUGS (2)
  1. PRENATAL VITAMIN [Concomitant]
     Active Substance: VITAMINS
  2. FLUCONAZOLE 150 MG [Suspect]
     Active Substance: FLUCONAZOLE
     Indication: PRODUCT USED FOR UNKNOWN INDICATION
     Dosage: IN THE MORNING TAKEN BY MOUTH
     Route: 048

REACTIONS (2)
  - Abortion spontaneous [None]
  - Maternal exposure during pregnancy [None]

NARRATIVE: CASE EVENT DATE: 20100310
